FAERS Safety Report 7339046-2 (Version None)
Quarter: 2011Q1

REPORT INFORMATION
  Report Type: 
  Country: None (occurrence: None)
  Receive Date: 20110308
  Receipt Date: 20110223
  Transmission Date: 20110831
  Serious: Yes (Hospitalization)
  Sender: FDA-Public Use
  Company Number: FR-ELI_LILLY_AND_COMPANY-FR201102007194

PATIENT
  Sex: Female

DRUGS (11)
  1. CYMBALTA [Suspect]
     Indication: DEPRESSION
     Dosage: 60 MG, UNK
     Route: 048
     Dates: start: 20080211, end: 20080226
  2. NOCTAMIDE [Concomitant]
  3. LEXOMIL [Concomitant]
  4. COBALT [Concomitant]
     Dosage: UNK, DAILY (1/D)
  5. DIGOXIN [Concomitant]
  6. SPECIAFOLDINE [Concomitant]
     Dosage: 50 MG, UNK
  7. TARDYFERON B9 [Concomitant]
  8. PLAVIX [Concomitant]
  9. FORTIMEL [Concomitant]
  10. MANGANESE [Concomitant]
  11. CUIVRE MICROSOL [Concomitant]

REACTIONS (1)
  - HEPATITIS [None]
